FAERS Safety Report 24127538 (Version 1)
Quarter: 2024Q3

REPORT INFORMATION
  Report Type: Spontaneous
  Country: US (occurrence: None)
  Receive Date: 20240723
  Receipt Date: 20240723
  Transmission Date: 20241016
  Serious: No
  Sender: Public
  Company Number: None

PATIENT
  Age: 47 Year
  Sex: Male

DRUGS (1)
  1. ODOMZO [Suspect]
     Active Substance: SONIDEGIB
     Indication: Basal cell carcinoma
     Dosage: TAKE 1 CAPSULE BY MOUTH ON EMPTY STOMACH  AT LEAST 1 HOUR BEFORE OR 2 HOURS AFTER?
     Route: 058
     Dates: start: 202406

REACTIONS (1)
  - Transient ischaemic attack [None]
